FAERS Safety Report 5977660-7 (Version None)
Quarter: 2008Q4

REPORT INFORMATION
  Report Type: 
  Country: None (occurrence: None)
  Receive Date: 20081203
  Receipt Date: 20081127
  Transmission Date: 20090506
  Serious: Yes (Other)
  Sender: FDA-Public Use
  Company Number: FR-BAXTER-2008BH013062

PATIENT
  Age: 25 Year
  Sex: Female

DRUGS (12)
  1. GAMMAGARD LIQUID [Suspect]
     Indication: DRUG USE FOR UNKNOWN INDICATION
     Route: 042
     Dates: start: 20080916, end: 20080920
  2. GAMMAGARD LIQUID [Suspect]
     Route: 042
     Dates: start: 20080916, end: 20080920
  3. GAMMAGARD LIQUID [Suspect]
     Route: 042
     Dates: start: 20080916, end: 20080920
  4. GAMMAGARD LIQUID [Suspect]
     Route: 042
     Dates: start: 20080916, end: 20080920
  5. GAMMAGARD LIQUID [Suspect]
     Route: 042
     Dates: start: 20080916, end: 20080920
  6. GAMMAGARD LIQUID [Suspect]
     Route: 042
     Dates: start: 20080916, end: 20080920
  7. LOVENOX [Suspect]
     Indication: DRUG USE FOR UNKNOWN INDICATION
     Dosage: DOSE UNIT:UNKNOWN
     Route: 058
     Dates: start: 20080916, end: 20080920
  8. PREGABALIN [Concomitant]
     Indication: POLYNEUROPATHY
     Route: 048
     Dates: start: 20080201
  9. AMITRIPTYLINE HCL [Concomitant]
     Indication: POLYNEUROPATHY
     Route: 048
     Dates: start: 20080201
  10. CERAZETTE [Concomitant]
     Route: 048
  11. NOVORAPID [Concomitant]
     Dates: start: 20071201
  12. LANTUS [Concomitant]

REACTIONS (2)
  - NEUTROPENIA [None]
  - WHITE BLOOD CELL COUNT DECREASED [None]
